FAERS Safety Report 7722676-3 (Version None)
Quarter: 2011Q3

REPORT INFORMATION
  Report Type: 
  Country: None (occurrence: None)
  Receive Date: 20110831
  Receipt Date: 20110822
  Transmission Date: 20111222
  Serious: Yes (Other)
  Sender: FDA-Public Use
  Company Number: US-ASTRAZENECA-2011SE50183

PATIENT
  Age: 57 Year
  Sex: Female
  Weight: 158.8 kg

DRUGS (5)
  1. HYDRALAZINE HCL [Concomitant]
     Indication: IRRITABLE BOWEL SYNDROME
     Route: 048
     Dates: start: 20080101
  2. CRESTOR [Suspect]
     Indication: ARTERIAL STENOSIS
     Route: 048
  3. TRAVIAM AMITRIPTYLINE [Concomitant]
     Route: 048
  4. RANITIDINE [Concomitant]
     Indication: IRRITABLE BOWEL SYNDROME
     Route: 048
     Dates: start: 19960101
  5. PERPHENAZINE [Concomitant]
     Indication: ABDOMINAL DISCOMFORT
     Route: 048

REACTIONS (4)
  - BEDRIDDEN [None]
  - ABASIA [None]
  - DYSGRAPHIA [None]
  - VISION BLURRED [None]
